FAERS Safety Report 8485971-9 (Version None)
Quarter: 2012Q3

REPORT INFORMATION
  Report Type: 
  Country: None (occurrence: None)
  Receive Date: 20120703
  Receipt Date: 20120626
  Transmission Date: 20120928
  Serious: No
  Sender: FDA-Public Use
  Company Number: US-B.I. PHARMACEUTICALS,INC./RIDGEFIELD-2012-BP-14464BP

PATIENT
  Sex: Male
  Weight: 70.31 kg

DRUGS (1)
  1. FLOMAX [Suspect]

REACTIONS (1)
  - URINARY INCONTINENCE [None]
